FAERS Safety Report 15471049 (Version 2)
Quarter: 2018Q4

REPORT INFORMATION
  Report Type: Spontaneous
  Country: US (occurrence: US)
  Receive Date: 20181006
  Receipt Date: 20181207
  Transmission Date: 20190205
  Serious: Yes (Hospitalization, Other)
  Sender: FDA-Public Use
  Company Number: US-009507513-1809USA013503

PATIENT
  Age: 77 Year
  Sex: Male
  Weight: 107.5 kg

DRUGS (7)
  1. ZOCOR [Suspect]
     Active Substance: SIMVASTATIN
     Dosage: 1 TAB, DAILY
     Route: 048
     Dates: start: 20160622
  2. ZOCOR [Suspect]
     Active Substance: SIMVASTATIN
     Dosage: ONE TABLET BY MOUTH ONCE DAILY IN THE EVENING
     Route: 048
     Dates: start: 20180109
  3. ENALAPRIL MALEATE. [Suspect]
     Active Substance: ENALAPRIL MALEATE
     Dosage: ONE TABLET BY MOUTH TWICE DAILY
     Route: 048
     Dates: start: 20180813
  4. ZOCOR [Suspect]
     Active Substance: SIMVASTATIN
     Dosage: ONE TABLET BY MOUTH ONCE DAILY IN THE EVENING
     Route: 048
     Dates: start: 20180813
  5. NEURONTIN [Suspect]
     Active Substance: GABAPENTIN
     Indication: NEUROPATHY PERIPHERAL
     Dosage: 600 MG TID
     Route: 048
     Dates: start: 201805, end: 20180601
  6. ZYLOPRIM [Suspect]
     Active Substance: ALLOPURINOL
     Dosage: 1 TABLET DAILY PER ORAL
     Route: 048
     Dates: start: 20160622
  7. ENALAPRIL MALEATE. [Suspect]
     Active Substance: ENALAPRIL MALEATE
     Dosage: ONE TABLET BY MOUTH TWICE DAILY
     Route: 048
     Dates: start: 20180109

REACTIONS (14)
  - Fluid retention [Unknown]
  - Acute kidney injury [Unknown]
  - Hypotension [Recovered/Resolved]
  - Lumbar spinal stenosis [Unknown]
  - Atrial fibrillation [Recovering/Resolving]
  - Hyperlipidaemia [Unknown]
  - Oedema peripheral [Unknown]
  - Back pain [Unknown]
  - Blindness unilateral [Unknown]
  - Deafness neurosensory [Unknown]
  - Gout [Unknown]
  - Bradycardia [Unknown]
  - Weight increased [Unknown]
  - Joint effusion [Recovering/Resolving]

NARRATIVE: CASE EVENT DATE: 20161109
